FAERS Safety Report 5268124-7 (Version None)
Quarter: 2007Q1

REPORT INFORMATION
  Report Type: 
  Country: None (occurrence: None)
  Receive Date: 20070319
  Receipt Date: 20070306
  Transmission Date: 20070707
  Serious: Yes (Hospitalization)
  Sender: FDA-Public Use
  Company Number: US-ELI_LILLY_AND_COMPANY-US200701000627

PATIENT
  Age: 48 Year
  Sex: Female
  Weight: 99.773 kg

DRUGS (1)
  1. ZYPREXA [Suspect]
     Dates: start: 19980101

REACTIONS (4)
  - DIABETES MELLITUS [None]
  - JOINT INJURY [None]
  - SUBCUTANEOUS ABSCESS [None]
  - WEIGHT INCREASED [None]
